FAERS Safety Report 13555803 (Version 1)
Quarter: 2017Q2

REPORT INFORMATION
  Report Type: Spontaneous
  Country: US (occurrence: US)
  Receive Date: 20170517
  Receipt Date: 20170517
  Transmission Date: 20170830
  Serious: Yes (Hospitalization)
  Sender: FDA-Public Use
  Company Number: US-LUNDBECK-DKLU2030999

PATIENT
  Sex: Male

DRUGS (2)
  1. NORTHERA [Suspect]
     Active Substance: DROXIDOPA
     Route: 048
  2. NORTHERA [Suspect]
     Active Substance: DROXIDOPA
     Indication: DIZZINESS
     Dosage: SCHEDULE C
     Route: 048
     Dates: start: 201704

REACTIONS (10)
  - Blood pressure decreased [Unknown]
  - Muscular weakness [Unknown]
  - Lumbar vertebral fracture [Unknown]
  - Dizziness [Unknown]
  - Asthenia [Unknown]
  - Fall [Unknown]
  - Balance disorder [Unknown]
  - Fatigue [Unknown]
  - Gait disturbance [Unknown]
  - Chest pain [Unknown]
